FAERS Safety Report 22023934 (Version 1)
Quarter: 2023Q1

REPORT INFORMATION
  Report Type: Spontaneous
  Country: RU (occurrence: RU)
  Receive Date: 20230223
  Receipt Date: 20230223
  Transmission Date: 20230418
  Serious: Yes (Other)
  Sender: FDA-Public Use
  Company Number: RU-SA-2023SA059649

PATIENT
  Age: 63 Year
  Sex: Female
  Weight: 87 kg

DRUGS (11)
  1. APIDRA SOLOSTAR [Suspect]
     Active Substance: INSULIN GLULISINE
     Indication: Type 2 diabetes mellitus
     Dosage: 30 IU; FREQUENCY 3 D
     Route: 058
     Dates: start: 20220228, end: 20220301
  2. TOUJEO [Concomitant]
     Active Substance: INSULIN GLARGINE
     Indication: Type 2 diabetes mellitus
     Dosage: 30 IU
     Route: 058
     Dates: start: 20220228, end: 20220301
  3. IVABRADINE [Concomitant]
     Active Substance: IVABRADINE
     Indication: Hypertensive heart disease
     Dosage: 10 MG, BID
     Dates: start: 20220128
  4. IVABRADINE [Concomitant]
     Active Substance: IVABRADINE
     Indication: Cardiac failure congestive
     Dosage: 7.5 MG, BID
     Dates: start: 20220228
  5. BISOPROLOL [Concomitant]
     Active Substance: BISOPROLOL
     Indication: Hypertensive heart disease
     Dosage: 5 MG, BID
     Dates: start: 20220128
  6. BISOPROLOL [Concomitant]
     Active Substance: BISOPROLOL
     Indication: Hypertension
     Dosage: 5 MG, QD
     Dates: start: 20220228
  7. HUMALOG MIX75/25 [Concomitant]
     Active Substance: INSULIN LISPRO
     Indication: Type 2 diabetes mellitus
     Dosage: 30 IU
     Route: 058
     Dates: start: 20220128
  8. LOSARTAN CANON [Concomitant]
     Indication: Hypertensive heart disease
     Dosage: 50 MG, BID
  9. MERIFATIN [Concomitant]
     Indication: Type 2 diabetes mellitus
     Dosage: 1000 MG, BID
  10. LOSARTAN [Concomitant]
     Active Substance: LOSARTAN
     Indication: Hypertensive heart disease
     Dosage: 100 MG, BID
     Dates: start: 20220228
  11. HUMALOG [Concomitant]
     Active Substance: INSULIN LISPRO
     Indication: Type 2 diabetes mellitus
     Dosage: 10 IU
     Dates: start: 20220228

REACTIONS (1)
  - Drug eruption [Recovered/Resolved]

NARRATIVE: CASE EVENT DATE: 20220228
